FAERS Safety Report 9802096 (Version 1)
Quarter: 2014Q1

REPORT INFORMATION
  Report Type: Spontaneous
  Country: US (occurrence: US)
  Receive Date: 20140107
  Receipt Date: 20140107
  Transmission Date: 20141002
  Serious: No
  Sender: FDA-Public Use
  Company Number: US-BIOGENIDEC-2014BI000020

PATIENT
  Age: 40 Year
  Sex: Male
  Weight: 108 kg

DRUGS (7)
  1. TECFIDERA [Suspect]
     Indication: PRODUCT USED FOR UNKNOWN INDICATION
     Route: 048
  2. TECFIDERA [Suspect]
     Indication: PRODUCT USED FOR UNKNOWN INDICATION
     Route: 048
  3. NEURONTIN [Concomitant]
     Route: 048
  4. CYMBALTA [Concomitant]
     Route: 048
  5. TEGRETOL [Concomitant]
     Route: 048
  6. TRAZODONE [Concomitant]
     Route: 048
  7. VIT D [Concomitant]

REACTIONS (5)
  - Fatigue [Unknown]
  - Pruritus [Unknown]
  - Flushing [Unknown]
  - Abdominal pain [Unknown]
  - Diarrhoea [Unknown]
